FAERS Safety Report 16919186 (Version 11)
Quarter: 2025Q4

REPORT INFORMATION
  Report Type: Spontaneous
  Country: US (occurrence: US)
  Receive Date: 20191015
  Receipt Date: 20251118
  Transmission Date: 20260118
  Serious: Yes (Other)
  Sender: PFIZER
  Company Number: US-PFIZER INC-2018264219

PATIENT
  Age: 70 Year
  Sex: Female

DRUGS (6)
  1. XELJANZ XR [Suspect]
     Active Substance: TOFACITINIB CITRATE
     Dosage: 11 MG, DAILY
  2. XELJANZ XR [Suspect]
     Active Substance: TOFACITINIB CITRATE
     Dosage: UNK
     Dates: end: 2020
  3. XELJANZ XR [Suspect]
     Active Substance: TOFACITINIB CITRATE
     Dosage: 11 MG
  4. GABAPENTIN [Concomitant]
     Active Substance: GABAPENTIN
     Dosage: 100 MG
  5. IBANDRONATE SODIUM [Concomitant]
     Active Substance: IBANDRONATE SODIUM
     Dosage: UNK
  6. SODIUM [Concomitant]
     Active Substance: SODIUM
     Dosage: UNK

REACTIONS (9)
  - Gastric haemorrhage [Unknown]
  - Gastrointestinal perforation [Unknown]
  - Gastric ulcer [Unknown]
  - Lower limb fracture [Unknown]
  - Anaemia [Unknown]
  - Eye disorder [Unknown]
  - Bladder disorder [Unknown]
  - Ulcer haemorrhage [Unknown]
  - Bone density abnormal [Unknown]
